FAERS Safety Report 24553395 (Version 1)
Quarter: 2024Q4

REPORT INFORMATION
  Report Type: Report from Study
  Country: US (occurrence: US)
  Receive Date: 20241028
  Receipt Date: 20241028
  Transmission Date: 20250114
  Serious: No
  Sender: ROCHE
  Company Number: US-ROCHE-3527094

PATIENT
  Age: 70 Year
  Sex: Female
  Weight: 88.7 kg

DRUGS (11)
  1. NUTROPIN AQ [Suspect]
     Active Substance: SOMATROPIN
     Indication: Hypopituitarism
     Dosage: NUSPIN 10 MG PEN, 0.5 MG DAILY
     Route: 058
  2. WELLBUTRIN [Concomitant]
     Active Substance: BUPROPION HYDROCHLORIDE
     Route: 048
  3. VITAMIN D2 [Concomitant]
     Active Substance: ERGOCALCIFEROL
     Route: 048
  4. ESTRACE [Concomitant]
     Active Substance: ESTRADIOL
     Route: 048
  5. PEPCID [Concomitant]
     Active Substance: FAMOTIDINE
     Route: 048
  6. MAGNESIUM OXIDE [Concomitant]
     Active Substance: MAGNESIUM OXIDE
     Route: 048
  7. MICROLET ENEMA [Concomitant]
  8. FISH OIL [Concomitant]
     Active Substance: FISH OIL
     Route: 048
  9. ZINC [Concomitant]
     Active Substance: ZINC
     Route: 048
  10. INDERAL [Concomitant]
     Active Substance: PROPRANOLOL HYDROCHLORIDE
     Route: 048
  11. SYNTHROID [Concomitant]
     Active Substance: LEVOTHYROXINE SODIUM
     Route: 048

REACTIONS (1)
  - Post-traumatic stress disorder [Unknown]
